FAERS Safety Report 6651033-6 (Version None)
Quarter: 2010Q1

REPORT INFORMATION
  Report Type: 
  Country: None (occurrence: None)
  Receive Date: 20100322
  Receipt Date: 20100305
  Transmission Date: 20100710
  Serious: Yes (Other)
  Sender: FDA-Public Use
  Company Number: AUR-APL-2010-00676

PATIENT
  Age: 76 Year
  Sex: Male

DRUGS (9)
  1. SIMVASTATIN [Suspect]
  2. BEZAFIBRATE (BEZALIP RETARD) [Concomitant]
  3. CARVEDILOL (CARVEDEXXON) [Concomitant]
  4. ASPIRIN (MICROPIRIN) [Concomitant]
  5. DOXAZOSIN (CADEX) [Concomitant]
  6. ISOSORBIDE 5 [Concomitant]
  7. MONONITRATE (MONOCORD) [Concomitant]
  8. ALLOPURINOL (ZYLOL) [Concomitant]
  9. RAMIPRIL [Concomitant]

REACTIONS (2)
  - RASH MORBILLIFORM [None]
  - REACTION TO DRUG EXCIPIENTS [None]
